FAERS Safety Report 13335947 (Version 2)
Quarter: 2017Q2

REPORT INFORMATION
  Report Type: Spontaneous
  Country: DE (occurrence: DE)
  Receive Date: 20170314
  Receipt Date: 20170516
  Transmission Date: 20170830
  Serious: Yes (Other)
  Sender: FDA-Public Use
  Company Number: PHHY2017DE034291

PATIENT
  Age: 69 Year
  Sex: Male
  Weight: 60.32 kg

DRUGS (3)
  1. L-THYROXIN [Concomitant]
     Active Substance: LEVOTHYROXINE SODIUM
     Indication: HYPOTHYROIDISM
     Dosage: 100 UG, QD
     Route: 048
     Dates: start: 2007
  2. RAMIPRIL COMP [Concomitant]
     Active Substance: HYDROCHLOROTHIAZIDE\RAMIPRIL
     Indication: HYPERTENSION
     Dosage: UNK 2.5 /12.5 MG
     Route: 048
     Dates: start: 2001
  3. TASIGNA [Suspect]
     Active Substance: NILOTINIB
     Indication: CHRONIC MYELOID LEUKAEMIA
     Dosage: 600 MG, QD
     Route: 048
     Dates: start: 20110412, end: 20160615

REACTIONS (5)
  - Mycosis fungoides [Recovering/Resolving]
  - Papule [Unknown]
  - Erythema [Unknown]
  - Lymphomatoid papulosis [Unknown]
  - Second primary malignancy [Recovering/Resolving]

NARRATIVE: CASE EVENT DATE: 201606
